FAERS Safety Report 20976410 (Version 1)
Quarter: 2022Q2

REPORT INFORMATION
  Report Type: Report from Study
  Country: GB (occurrence: GB)
  Receive Date: 20220617
  Receipt Date: 20220617
  Transmission Date: 20220720
  Serious: Yes (Hospitalization)
  Sender: FDA-Public Use
  Company Number: GB-ABBVIE-22P-167-4434407-00

PATIENT
  Sex: Female
  Weight: 83.9 kg

DRUGS (11)
  1. VENETOCLAX [Suspect]
     Active Substance: VENETOCLAX
     Indication: Acute myeloid leukaemia
     Dosage: LAST ADMINISTERED ON 12 JUN 2022
     Route: 048
     Dates: start: 20220107
  2. CYTARABINE [Concomitant]
     Active Substance: CYTARABINE
     Indication: Product used for unknown indication
     Dosage: LAST ADMINISTERED ON 11 JUN 2022
     Route: 058
     Dates: start: 20220107
  3. ACYCLOVIR [Concomitant]
     Active Substance: ACYCLOVIR
     Indication: Antiviral prophylaxis
     Route: 048
     Dates: start: 20220106
  4. CALCIUM CARBONATE\CHOLECALCIFEROL [Concomitant]
     Active Substance: CALCIUM CARBONATE\CHOLECALCIFEROL
     Indication: Vitamin supplementation
     Route: 048
     Dates: start: 20220202
  5. LEVOTHYROXINE [Concomitant]
     Active Substance: LEVOTHYROXINE
     Indication: Thyroxine therapy
     Route: 048
     Dates: start: 20220106
  6. FELODIPINE [Concomitant]
     Active Substance: FELODIPINE
     Indication: Blood pressure management
     Route: 048
     Dates: start: 20220106
  7. OMEPRAZOLE [Concomitant]
     Active Substance: OMEPRAZOLE
     Indication: Prophylaxis
     Route: 048
     Dates: start: 20220108
  8. POSACONAZOLE [Concomitant]
     Active Substance: POSACONAZOLE
     Indication: Antifungal prophylaxis
     Route: 048
     Dates: start: 20220110
  9. CARBOCYSTEINE [Concomitant]
     Active Substance: CARBOCYSTEINE
     Indication: Product used for unknown indication
     Route: 048
     Dates: start: 20220130
  10. CHLORHEXIDINE GLUCONATE [Concomitant]
     Active Substance: CHLORHEXIDINE GLUCONATE
     Indication: Product used for unknown indication
     Dosage: ALCOHOL FREE
     Route: 002
     Dates: start: 20220110
  11. ACETAMINOPHEN [Concomitant]
     Active Substance: ACETAMINOPHEN
     Indication: Myalgia
     Route: 048
     Dates: start: 20220613

REACTIONS (3)
  - C-reactive protein increased [Unknown]
  - Pyrexia [Unknown]
  - Sepsis [Unknown]

NARRATIVE: CASE EVENT DATE: 20220612
